FAERS Safety Report 12926578 (Version 1)
Quarter: 2016Q4

REPORT INFORMATION
  Report Type: Spontaneous
  Country: SE (occurrence: SE)
  Receive Date: 20161109
  Receipt Date: 20161109
  Transmission Date: 20170207
  Serious: Yes (Other)
  Sender: FDA-Public Use
  Company Number: SE-TEVA-709849ACC

PATIENT
  Age: 71 Year
  Sex: Male

DRUGS (1)
  1. ALFUZOSIN TEVA 10 MG PROLONGED-RELEASE TABLETS [Suspect]
     Active Substance: ALFUZOSIN
     Indication: MICTURITION URGENCY
     Dosage: 10 MILLIGRAM DAILY;
     Route: 048
     Dates: start: 20160914, end: 20160919

REACTIONS (1)
  - Tinnitus [Recovered/Resolved]

NARRATIVE: CASE EVENT DATE: 20160915
